FAERS Safety Report 9321814 (Version 2)
Quarter: 2013Q3

REPORT INFORMATION
  Report Type: Spontaneous
  Country: AU (occurrence: AU)
  Receive Date: 20130531
  Receipt Date: 20130718
  Transmission Date: 20140515
  Serious: Yes (Other)
  Sender: FDA-Public Use
  Company Number: AU-009507513-1305AUS017023

PATIENT
  Sex: Female

DRUGS (3)
  1. OVESTIN [Suspect]
     Dosage: UNK
     Dates: start: 20080515
  2. THYROXINE [Concomitant]
  3. ASPIRIN [Concomitant]

REACTIONS (1)
  - Neoplasm malignant [Unknown]
